FAERS Safety Report 7657051-3 (Version None)
Quarter: 2011Q3

REPORT INFORMATION
  Report Type: 
  Country: None (occurrence: None)
  Receive Date: 20110804
  Receipt Date: 20110729
  Transmission Date: 20111222
  Serious: Yes (Other)
  Sender: FDA-Public Use
  Company Number: IT-BAYER-2011-060728

PATIENT
  Age: 44 Year
  Sex: Male

DRUGS (1)
  1. ULTRAVIST 150 [Suspect]
     Indication: SCAN WITH CONTRAST
     Dosage: 3 G, ONCE
     Route: 042
     Dates: start: 20110523, end: 20110523

REACTIONS (2)
  - RASH PUSTULAR [None]
  - PURPURA [None]
